FAERS Safety Report 8202476-0 (Version None)
Quarter: 2012Q1

REPORT INFORMATION
  Report Type: 
  Country: None (occurrence: None)
  Receive Date: 20120312
  Receipt Date: 20120301
  Transmission Date: 20120608
  Serious: Yes (Hospitalization)
  Sender: FDA-Public Use
  Company Number: JP-JNJFOC-20120210779

PATIENT
  Sex: Male

DRUGS (20)
  1. METHOTREXATE [Suspect]
     Indication: RHEUMATOID ARTHRITIS
     Route: 048
     Dates: start: 20021017
  2. REMICADE [Suspect]
     Dosage: 50 INFUSIONS ON UNSPECIFIED DATES
     Route: 042
  3. NSAIDS [Concomitant]
     Route: 065
  4. REMICADE [Suspect]
     Route: 042
     Dates: start: 20040224
  5. ALFAROL [Suspect]
     Indication: OSTEOPOROSIS PROPHYLAXIS
     Route: 048
     Dates: start: 20080301
  6. EURAX [Suspect]
     Indication: PRURITUS
     Dates: start: 20090123
  7. SULFASALAZINE [Concomitant]
     Route: 065
  8. REMICADE [Suspect]
     Indication: RHEUMATOID ARTHRITIS
     Dosage: 52ND DOSE
     Route: 042
     Dates: start: 20111122
  9. METHOTREXATE [Suspect]
     Route: 048
     Dates: start: 20081127
  10. MESADORIN-S [Suspect]
     Indication: GASTRITIS
     Route: 048
  11. MUCOSOLVAN [Suspect]
     Indication: BRONCHITIS CHRONIC
     Route: 048
     Dates: start: 20080305
  12. VOLTAREN [Suspect]
     Indication: RHEUMATOID ARTHRITIS
     Dates: start: 20080901
  13. BAKUMONDOUTO [Suspect]
     Indication: BRONCHITIS CHRONIC
     Route: 048
     Dates: start: 20110901
  14. TICLOPIDINE HCL [Suspect]
     Indication: CEREBRAL INFARCTION
     Route: 048
  15. ADALAT [Suspect]
     Indication: HYPERTENSION
     Dates: start: 20090507
  16. METHOTREXATE [Suspect]
     Route: 048
  17. PREDNISOLONE [Suspect]
     Route: 048
     Dates: start: 20021017
  18. GASMOTIN [Suspect]
     Indication: GASTRITIS
     Route: 048
     Dates: start: 20080305
  19. PREDNISOLONE [Suspect]
     Indication: RHEUMATOID ARTHRITIS
     Route: 048
  20. LANSOPRAZOLE [Suspect]
     Indication: PROPHYLAXIS AGAINST GASTROINTESTINAL ULCER
     Route: 048
     Dates: start: 20071107

REACTIONS (3)
  - COMPRESSION FRACTURE [None]
  - LUNG NEOPLASM MALIGNANT [None]
  - ENTEROCOLITIS [None]
